FAERS Safety Report 6074086-5 (Version None)
Quarter: 2009Q1

REPORT INFORMATION
  Report Type: 
  Country: None (occurrence: None)
  Receive Date: 20090211
  Receipt Date: 20090205
  Transmission Date: 20090719
  Serious: Yes (Death)
  Sender: FDA-Public Use
  Company Number: A0767768A

PATIENT
  Age: 80 Year
  Sex: Female

DRUGS (1)
  1. SERETIDE [Suspect]
     Indication: BRONCHITIS
     Dates: start: 20040101, end: 20090130

REACTIONS (1)
  - CEREBRAL ISCHAEMIA [None]
